FAERS Safety Report 4614164-8 (Version None)
Quarter: 2005Q1

REPORT INFORMATION
  Report Type: 
  Country: None (occurrence: None)
  Receive Date: 20050316
  Receipt Date: 20050307
  Transmission Date: 20050727
  Serious: Yes (Life-Threatening, Hospitalization)
  Sender: FDA-Public Use
  Company Number: ES-2005-003446

PATIENT
  Age: 50 Year
  Sex: Male

DRUGS (1)
  1. BETAFERON (INTERFERON BETA - 1B) INJECTION, 250UG [Suspect]
     Indication: MULTIPLE SCLEROSIS
     Dosage: 75 MG, 3X/WEEK, SUBCUTANEOUS
     Route: 058
     Dates: start: 19940101, end: 20041125

REACTIONS (6)
  - BLOOD BILIRUBIN INCREASED [None]
  - BLOOD CREATININE INCREASED [None]
  - BLOOD POTASSIUM DECREASED [None]
  - HAEMATOCRIT DECREASED [None]
  - HERPES ZOSTER [None]
  - THROMBOTIC THROMBOCYTOPENIC PURPURA [None]
